FAERS Safety Report 9559272 (Version 2)
Quarter: 2013Q4

REPORT INFORMATION
  Report Type: Spontaneous
  Country: GB (occurrence: GB)
  Receive Date: 20130927
  Receipt Date: 20131016
  Transmission Date: 20140711
  Serious: Yes (Disabling)
  Sender: FDA-Public Use
  Company Number: GB-AMGEN-GBRSP2013067720

PATIENT
  Age: 45 Year
  Sex: Male

DRUGS (7)
  1. ENBREL [Suspect]
     Indication: RHEUMATOID ARTHRITIS
     Dosage: 50 MG, UNK
     Route: 058
     Dates: start: 201306, end: 201308
  2. MST CONTINUS [Concomitant]
     Indication: PAIN
     Dosage: 80 MG, 1X/DAY
     Route: 048
  3. OMEPRAZOLE [Concomitant]
     Indication: GASTROOESOPHAGEAL REFLUX DISEASE
     Dosage: 20 MG, 2X/DAY
     Route: 048
  4. METFORMIN [Concomitant]
     Indication: DIABETES MELLITUS
     Dosage: 2 G, 1X/DAY
     Route: 048
  5. CELEBREX [Concomitant]
     Indication: RHEUMATOID ARTHRITIS
     Dosage: 200 MG, 1X/DAY
     Route: 048
  6. AMITRIPTYLINE [Concomitant]
     Dosage: 20 MG, 1X/DAY AT NIGHT
     Route: 065
  7. SIMVASTATIN [Concomitant]
     Dosage: 40 MG, 1X/DAY
     Route: 065

REACTIONS (2)
  - Abdominal pain [Recovering/Resolving]
  - Diarrhoea [Recovering/Resolving]
